FAERS Safety Report 8185333-8 (Version None)
Quarter: 2012Q1

REPORT INFORMATION
  Report Type: 
  Country: None (occurrence: None)
  Receive Date: 20120305
  Receipt Date: 20120228
  Transmission Date: 20120608
  Serious: Yes (Disabling)
  Sender: FDA-Public Use
  Company Number: PHHY2012IN017136

PATIENT
  Age: 60 Year
  Sex: Female

DRUGS (1)
  1. ZOLEDRONOC ACID [Suspect]
     Indication: OSTEOPOROSIS
     Dosage: 5 MG, PER 100 ML, YEARLY
     Route: 042
     Dates: start: 20120208

REACTIONS (3)
  - PRURITUS [None]
  - SKIN DISCOLOURATION [None]
  - DERMATITIS ALLERGIC [None]
